FAERS Safety Report 23821437 (Version 1)
Quarter: 2024Q2

REPORT INFORMATION
  Report Type: Spontaneous
  Country: US (occurrence: None)
  Receive Date: 20240504
  Receipt Date: 20240504
  Transmission Date: 20240716
  Serious: Yes (Other)
  Sender: FDA-Public Use
  Company Number: None

PATIENT
  Age: 68 Year
  Sex: Female
  Weight: 119.7 kg

DRUGS (8)
  1. ARIPIPRAZOLE [Suspect]
     Active Substance: ARIPIPRAZOLE
     Indication: Depression
     Dosage: OTHER QUANTITY : 1 TABLET(S);?
     Route: 048
     Dates: start: 20140315, end: 20240424
  2. SIMVASTATIN [Concomitant]
     Active Substance: SIMVASTATIN
  3. TRIAMTERE-HYDROCHLOROTHIAZIADE [Concomitant]
  4. METFORMIN [Concomitant]
     Active Substance: METFORMIN HYDROCHLORIDE
  5. LOSARTAN [Concomitant]
     Active Substance: LOSARTAN
  6. DULOXETENE DR [Concomitant]
  7. FLONASE [Concomitant]
     Active Substance: FLUTICASONE PROPIONATE
  8. HAWTHORNE MILK THISTLE [Concomitant]

REACTIONS (5)
  - Middle insomnia [None]
  - Trance [None]
  - Anger [None]
  - Depression [None]
  - Economic problem [None]

NARRATIVE: CASE EVENT DATE: 20240405
